FAERS Safety Report 5895875-3 (Version None)
Quarter: 2008Q3

REPORT INFORMATION
  Report Type: 
  Country: None (occurrence: None)
  Receive Date: 20080924
  Receipt Date: 20080919
  Transmission Date: 20090109
  Serious: Yes (Other)
  Sender: FDA-Public Use
  Company Number: GR-AVENTIS-200818387GDDC

PATIENT
  Age: 52 Year
  Sex: Female

DRUGS (7)
  1. APIDRA [Suspect]
     Route: 058
     Dates: start: 20050101
  2. LANTUS [Concomitant]
  3. GLUCOPHAGE [Concomitant]
  4. CARDIOVASCULAR SYSTEM DRUGS [Concomitant]
     Indication: HYPERTENSION
  5. XANAX [Concomitant]
     Indication: STRESS
  6. XANAX [Concomitant]
     Indication: INSOMNIA
  7. XANAX [Concomitant]
     Indication: AGITATION

REACTIONS (1)
  - WEIGHT INCREASED [None]
